FAERS Safety Report 7293354-2 (Version None)
Quarter: 2011Q1

REPORT INFORMATION
  Report Type: 
  Country: None (occurrence: None)
  Receive Date: 20110215
  Receipt Date: 20110209
  Transmission Date: 20110831
  Serious: Yes (Other)
  Sender: FDA-Public Use
  Company Number: JP-SANOFI-AVENTIS-2011SA008303

PATIENT
  Age: 62 Year

DRUGS (3)
  1. AMARYL [Suspect]
     Route: 048
  2. ODRIC [Concomitant]
     Route: 048
  3. AMLODIPINE BESILATE [Concomitant]
     Route: 048

REACTIONS (1)
  - PRINZMETAL ANGINA [None]
